FAERS Safety Report 23283586 (Version 1)
Quarter: 2023Q4

REPORT INFORMATION
  Report Type: Spontaneous
  Country: PT (occurrence: PT)
  Receive Date: 20231211
  Receipt Date: 20231211
  Transmission Date: 20240109
  Serious: Yes (Other)
  Sender: FDA-Public Use
  Company Number: None

PATIENT
  Age: 64 Year
  Sex: Male

DRUGS (6)
  1. OXALIPLATIN [Suspect]
     Active Substance: OXALIPLATIN
     Indication: Product used for unknown indication
     Route: 042
     Dates: start: 20231116, end: 20231116
  2. Hydrocortisone Generis [Concomitant]
     Indication: Product used for unknown indication
     Dosage: POWDER FOR SOLUTION FOR INJECTION?ROA-20045000?INTRAVENOUS
  3. DEXAMETHASONE [Concomitant]
     Active Substance: DEXAMETHASONE
     Indication: Product used for unknown indication
     Dosage: TABLET?ORAL?ROA-20053000
  4. CLEMASTINE FUMARATE [Concomitant]
     Active Substance: CLEMASTINE FUMARATE
     Indication: Product used for unknown indication
     Dosage: SOLUTION FOR INJECTION?ROA-20045000?INTRAVENOUSSOLUTION FOR INJECTION
  5. LASA [Concomitant]
     Indication: Product used for unknown indication
     Dosage: TABLET?ORAL?ROA-20053000
  6. ONDANSETRON [Concomitant]
     Active Substance: ONDANSETRON
     Indication: Product used for unknown indication

REACTIONS (3)
  - Erythema [Recovered/Resolved]
  - Dysphonia [Recovered/Resolved]
  - Throat tightness [Recovered/Resolved]

NARRATIVE: CASE EVENT DATE: 20231116
